FAERS Safety Report 8105536-8 (Version None)
Quarter: 2012Q1

REPORT INFORMATION
  Report Type: 
  Country: None (occurrence: None)
  Receive Date: 20120201
  Receipt Date: 20120127
  Transmission Date: 20120608
  Serious: No
  Sender: FDA-Public Use
  Company Number: US-PFIZER INC-2012007351

PATIENT
  Sex: Female
  Weight: 94.785 kg

DRUGS (25)
  1. COREG [Concomitant]
     Indication: HYPERTENSION
     Dosage: 6.25 MG, DAILY
  2. OXYGEN [Concomitant]
     Dosage: 3 LITERS QHS
     Dates: start: 20110926
  3. FUROSEMIDE [Concomitant]
     Dosage: 20 MG, 1 PO M, W, F
     Route: 048
     Dates: start: 20110323
  4. VITAMIN D [Concomitant]
     Dosage: 1000 UNIT, 1 PO DAILY
     Route: 048
     Dates: start: 20101119
  5. CODEINE AND GUAIFENESIN [Concomitant]
     Dosage: UNK, (1-2 TSP EVERY 4 HOURS PRN)
     Dates: start: 20111004
  6. SEROQUEL [Suspect]
     Indication: BIPOLAR DISORDER
     Dosage: 300 MG, DAILY
     Route: 048
  7. ISOSORBIDE [Concomitant]
     Indication: HYPERTENSION
     Dosage: 60 MG, DAILY (1 PO QD)
     Route: 048
  8. KLONOPIN [Concomitant]
     Dosage: 1.5 MG, 1X/DAY (1 MG, 1 1/2 PO QD)
     Route: 048
     Dates: start: 20101119
  9. VENTOLIN [Concomitant]
     Dosage: UNK, PRN
     Dates: start: 20101119
  10. GLIPIZIDE [Concomitant]
     Dosage: 10 MG, 1X/DAY (QD)
     Route: 048
  11. ACETYLSALICYLIC ACID [Concomitant]
     Dosage: 81 MG, 1X/DAY (1 PO QD)
     Route: 048
     Dates: start: 20101119
  12. CENTRUM [Concomitant]
     Dosage: UNK, 1X/DAY (1 PO QD)
     Route: 048
     Dates: start: 20101119
  13. PRILOSEC [Concomitant]
     Dosage: 20 MG, AS NEEDED (20 MG, 1 PO PRN)
     Route: 048
     Dates: start: 20101119
  14. FERROUS SULFATE [Concomitant]
     Dosage: 325 (65 FE), 1 PO QD
     Route: 048
     Dates: start: 20111004
  15. ADVAIR DISKUS 100/50 [Concomitant]
     Dosage: 100-50 MCG, 1 PUFF BID
     Dates: start: 20101119
  16. NITROSTAT [Concomitant]
     Dosage: 0.4 MG, AS NEEDED (PRN)
     Dates: start: 20101119
  17. COREG [Concomitant]
     Dosage: 6.25 MG, 1 PO AM + PM
     Route: 048
  18. NICOTROL [Suspect]
     Indication: SMOKING CESSATION THERAPY
     Dosage: 10 MG, AS DIRECTED NO MORE THAN 12 CARTRIDGES DAILY
     Route: 055
     Dates: start: 20120109
  19. LAMICTAL [Concomitant]
     Dosage: 150 MG, 1X/DAY (1 PO AT BEDTIME)
     Route: 048
     Dates: start: 20101119
  20. EXTRA STRENGTH TYLENOL [Concomitant]
     Dosage: 500 MG, 1-2 Q 4 HOURS PRN
     Dates: start: 20101119
  21. CELEBREX [Concomitant]
     Dosage: 200 MG 1 PO QD PRN
     Route: 048
     Dates: start: 20101119
  22. RANITIDINE HYDROCHLORIDE [Concomitant]
     Indication: GASTROOESOPHAGEAL REFLUX DISEASE
     Dosage: 150 MG, 1 PO BID, PRN
     Route: 048
     Dates: start: 20110201
  23. TRAZODONE HYDROCHLORIDE [Concomitant]
     Dosage: 100 MG, 1X/DAY (50 MG, 2 PO QHS)
     Route: 048
  24. RANITIDINE HYDROCHLORIDE [Concomitant]
     Indication: DYSPEPSIA
  25. LEVOTHYROXINE SODIUM [Concomitant]
     Dosage: 88 UG, 1X/DAY (1 PO QD)
     Route: 048
     Dates: start: 20110926

REACTIONS (2)
  - SOMNOLENCE [None]
  - INCORRECT DOSE ADMINISTERED [None]
